FAERS Safety Report 4356812-6 (Version None)
Quarter: 2004Q2

REPORT INFORMATION
  Report Type: 
  Country: None (occurrence: None)
  Receive Date: 20040507
  Receipt Date: 20040422
  Transmission Date: 20050107
  Serious: Yes (Hospitalization)
  Sender: FDA-Public Use
  Company Number: A0508716A

PATIENT
  Age: 57 Year
  Sex: Male
  Weight: 99.7913 kg

DRUGS (12)
  1. TESTOSTERONE [Suspect]
     Indication: ERECTILE DYSFUNCTION
     Dosage: 5 MG / AT NIGHT / TRANSDERMAL
     Route: 062
     Dates: start: 20030318, end: 20030329
  2. FLUNISOLIDE [Concomitant]
  3. SODIUM RABEPRAZOLE [Concomitant]
  4. FOSINOPRIL SODIUM [Concomitant]
  5. COMBIVENT [Concomitant]
  6. CHLORTHALIDONE [Concomitant]
  7. SEMISODIUM VALPROATE [Concomitant]
  8. PERCOCET [Concomitant]
  9. ROBITUSSIN-DM [Concomitant]
  10. CLONIDINE HCL [Concomitant]
  11. SLDENAFIL CITRATE [Concomitant]
  12. HYDROCHLOROTHIAZIDE [Concomitant]

REACTIONS (6)
  - AORTIC ANEURYSM [None]
  - APPLICATION SITE DERMATITIS [None]
  - APPLICATION SITE PUSTULES [None]
  - DERMATITIS CONTACT [None]
  - NECROTISING FASCIITIS [None]
  - SKIN GRAFT [None]
